FAERS Safety Report 17290490 (Version 1)
Quarter: 2020Q1

REPORT INFORMATION
  Report Type: Report from Study
  Country: None (occurrence: US)
  Receive Date: 20200121
  Receipt Date: 20200121
  Transmission Date: 20200409
  Serious: Yes (Other)
  Sender: FDA-Public Use
  Company Number: US-ABBVIE-19K-163-3156111-00

PATIENT
  Sex: Male

DRUGS (3)
  1. IMBRUVICA [Suspect]
     Active Substance: IBRUTINIB
     Indication: CHRONIC LYMPHOCYTIC LEUKAEMIA
     Dosage: 140 MG, QD
     Route: 048
  2. IMBRUVICA [Suspect]
     Active Substance: IBRUTINIB
     Route: 048
     Dates: start: 20160201
  3. IMBRUVICA [Suspect]
     Active Substance: IBRUTINIB
     Indication: CHRONIC LYMPHOCYTIC LEUKAEMIA
     Dosage: UNK UNK, QD
     Route: 048
     Dates: start: 20160201

REACTIONS (9)
  - Pancreatic disorder [Unknown]
  - Erythema [Unknown]
  - Mobility decreased [Unknown]
  - Stomatitis [Unknown]
  - Poor quality sleep [Unknown]
  - Joint swelling [Unknown]
  - Arthralgia [Unknown]
  - Bone marrow disorder [Unknown]
  - Musculoskeletal discomfort [Unknown]
